FAERS Safety Report 17075596 (Version 4)
Quarter: 2020Q1

REPORT INFORMATION
  Report Type: Spontaneous
  Country: US (occurrence: US)
  Receive Date: 20191126
  Receipt Date: 20200219
  Transmission Date: 20200409
  Serious: No
  Sender: FDA-Public Use
  Company Number: US-PFIZER INC-2019507647

PATIENT
  Age: 52 Year
  Sex: Female

DRUGS (1)
  1. ESTRING [Suspect]
     Active Substance: ESTRADIOL
     Dosage: UNK, DAILY (7.5 UG/24H, INSERT 1 VAGINAL RING BY VAGINAL ROUTE EVERY 90 DAYS FOR 90 DAYS)
     Route: 067

REACTIONS (2)
  - Irritability [Unknown]
  - Mood swings [Unknown]
